FAERS Safety Report 4527655-5 (Version None)
Quarter: 2004Q4

REPORT INFORMATION
  Report Type: 
  Country: None (occurrence: None)
  Receive Date: 20041215
  Receipt Date: 20041013
  Transmission Date: 20050328
  Serious: Yes (Other)
  Sender: FDA-Public Use
  Company Number: US-AMGEN-US096423

PATIENT
  Sex: Female

DRUGS (3)
  1. ENBREL [Suspect]
     Indication: RHEUMATOID ARTHRITIS
     Route: 058
     Dates: start: 20021001, end: 20040501
  2. METHOTREXATE [Concomitant]
     Dates: start: 20010101
  3. CELEBREX [Concomitant]

REACTIONS (4)
  - ARTHRALGIA [None]
  - DNA ANTIBODY [None]
  - JOINT SWELLING [None]
  - SYSTEMIC LUPUS ERYTHEMATOSUS [None]
